FAERS Safety Report 17885974 (Version 1)
Quarter: 2020Q2

REPORT INFORMATION
  Report Type: Report from Study
  Country: None (occurrence: GR)
  Receive Date: 20200611
  Receipt Date: 20200611
  Transmission Date: 20200714
  Serious: Yes (Hospitalization)
  Sender: FDA-Public Use
  Company Number: GR-ABBVIE-20K-066-3440442-00

PATIENT
  Sex: Male
  Weight: 65 kg

DRUGS (5)
  1. DUODOPA [Suspect]
     Active Substance: CARBIDOPA\LEVODOPA
     Indication: PARKINSON^S DISEASE
     Dosage: MORNING DOSE: 10.4ML; CONTINUOUS RATE: 2.4ML/H; EXTRA DOSE: 1.5ML
     Route: 050
     Dates: start: 20191008
  2. HEART FREE [Concomitant]
     Indication: PRODUCT USED FOR UNKNOWN INDICATION
     Route: 048
  3. T4 [Concomitant]
     Active Substance: LEVOTHYROXINE
     Indication: TYPE 2 DIABETES MELLITUS
     Route: 048
  4. DIALOSA [Concomitant]
     Indication: TYPE 2 DIABETES MELLITUS
     Route: 048
  5. ENTACT [Concomitant]
     Active Substance: ESCITALOPRAM OXALATE
     Indication: DEPRESSION
     Route: 048

REACTIONS (2)
  - Bedridden [Not Recovered/Not Resolved]
  - Hip fracture [Not Recovered/Not Resolved]

NARRATIVE: CASE EVENT DATE: 2020
